FAERS Safety Report 6969663-0 (Version None)
Quarter: 2010Q3

REPORT INFORMATION
  Report Type: 
  Country: None (occurrence: None)
  Receive Date: 20100908
  Receipt Date: 20100901
  Transmission Date: 20110219
  Serious: Yes (Death)
  Sender: FDA-Public Use
  Company Number: US-US-EMD SERONO, INC.-7016370

PATIENT
  Sex: Female

DRUGS (3)
  1. REBIF [Suspect]
     Dates: start: 20100630
  2. SO MANY PRESCRIPTION DRUGS [Concomitant]
  3. OXYCODONE [Concomitant]

REACTIONS (3)
  - ABNORMAL BEHAVIOUR [None]
  - DEATH [None]
  - PAIN [None]
